FAERS Safety Report 25456263 (Version 1)
Quarter: 2025Q2

REPORT INFORMATION
  Report Type: Spontaneous
  Country: FR (occurrence: FR)
  Receive Date: 20250619
  Receipt Date: 20250619
  Transmission Date: 20250717
  Serious: Yes (Other)
  Sender: MERCK SHARP & DOHME LLC
  Company Number: None

PATIENT
  Age: 44 Year
  Sex: Female
  Weight: 68.5 kg

DRUGS (1)
  1. CASPOFUNGIN [Suspect]
     Active Substance: CASPOFUNGIN
     Indication: Systemic candida
     Dosage: DOSE DESCRIPTION : 50 MILLIGRAM, QD, POWDER FOR SOLUTION FOR INFUSION DAILY DOSE : 50 MILLIGRAM
     Route: 042
     Dates: start: 20180315

REACTIONS (3)
  - Drug ineffective [Recovered/Resolved]
  - Drug-device interaction [Unknown]
  - Product use issue [Unknown]

NARRATIVE: CASE EVENT DATE: 20180315
